FAERS Safety Report 16740580 (Version 5)
Quarter: 2019Q4

REPORT INFORMATION
  Report Type: Spontaneous
  Country: PT (occurrence: PT)
  Receive Date: 20190826
  Receipt Date: 20191119
  Transmission Date: 20200122
  Serious: Yes (Life-Threatening, Hospitalization, Other)
  Sender: FDA-Public Use
  Company Number: PT-MYLANLABS-2019M1079457

PATIENT
  Age: 38 Year
  Sex: Female

DRUGS (17)
  1. QUETIAPINE. [Suspect]
     Active Substance: QUETIAPINE
     Dosage: 800 MILLIGRAM, QD
     Route: 065
  2. PARACETAMOL [Suspect]
     Active Substance: ACETAMINOPHEN
     Indication: PRODUCT USED FOR UNKNOWN INDICATION
     Dosage: 15 GRAM, TOTAL
     Route: 065
  3. ALPRAZOLAM. [Suspect]
     Active Substance: ALPRAZOLAM
     Dosage: 40 MG, TOTAL
     Route: 065
  4. PARACETAMOL [Suspect]
     Active Substance: ACETAMINOPHEN
     Dosage: 5 GRAM, QD
     Route: 065
  5. ALPRAZOLAM. [Suspect]
     Active Substance: ALPRAZOLAM
     Indication: PRODUCT USED FOR UNKNOWN INDICATION
     Dosage: 16 MG, QD
     Route: 065
  6. ALPRAZOLAM. [Suspect]
     Active Substance: ALPRAZOLAM
     Dosage: 9 G
     Route: 065
  7. CODEINE [Suspect]
     Active Substance: CODEINE
     Dosage: UNK
     Route: 065
  8. AMOXICILLIN CLAVULANIC ACID [Suspect]
     Active Substance: AMOXICILLIN\CLAVULANIC ACID
     Indication: PNEUMONIA
     Dosage: UNKNOWN DOSE,2 WEEK
  9. PRACET [Suspect]
     Active Substance: VENLAFAXINE HYDROCHLORIDE
     Indication: PRODUCT USED FOR UNKNOWN INDICATION
     Dosage: 3 GRAM, QD
     Route: 065
  10. QUETIAPINE. [Suspect]
     Active Substance: QUETIAPINE
     Indication: PRODUCT USED FOR UNKNOWN INDICATION
     Dosage: 9 GRAM (900 MG)
     Route: 065
  11. VENLAFAXINE [Suspect]
     Active Substance: VENLAFAXINE HYDROCHLORIDE
     Indication: PRODUCT USED FOR UNKNOWN INDICATION
     Dosage: 3 GRAM
     Route: 065
  12. NOREPINEPHRINE BITARTRATE. [Suspect]
     Active Substance: NOREPINEPHRINE BITARTRATE
     Indication: VASOPRESSIVE THERAPY
     Dosage: UNK, 5 DAYS
  13. ALPRAZOLAM. [Suspect]
     Active Substance: ALPRAZOLAM
     Dosage: 20 MG, ONCE DAILY (QD)
     Route: 065
  14. ALPRAZOLAM. [Suspect]
     Active Substance: ALPRAZOLAM
     Dosage: 40 MILLIGRAM
     Route: 065
  15. CODEINE [Suspect]
     Active Substance: CODEINE
     Indication: PRODUCT USED FOR UNKNOWN INDICATION
     Dosage: 900 MILLIGRAM, QD
     Route: 048
  16. CODEINE [Suspect]
     Active Substance: CODEINE
     Dosage: 300 MG, ONCE DAILY (QD)
     Route: 065
  17. AMOXICILLIN CLAVULANIC ACID [Suspect]
     Active Substance: AMOXICILLIN\CLAVULANIC ACID
     Indication: STAPHYLOCOCCAL INFECTION

REACTIONS (23)
  - Cardiovascular disorder [Unknown]
  - Cholestasis [Recovering/Resolving]
  - Vocal cord paralysis [Unknown]
  - Pneumonia [Unknown]
  - Multiple organ dysfunction syndrome [Recovered/Resolved]
  - Nervous system disorder [Recovered/Resolved]
  - Respiratory disorder [Recovered/Resolved]
  - Liver injury [Recovering/Resolving]
  - Drug abuse [Recovered/Resolved]
  - Intentional overdose [Unknown]
  - Normochromic normocytic anaemia [Unknown]
  - Renal papillary necrosis [Recovering/Resolving]
  - Respiratory failure [Unknown]
  - Staphylococcal infection [Unknown]
  - Depressed mood [Unknown]
  - Distributive shock [Recovered/Resolved]
  - Anuria [Recovering/Resolving]
  - Delirium [Unknown]
  - Agitation [Unknown]
  - Hydronephrosis [Unknown]
  - Acute kidney injury [Recovering/Resolving]
  - Coma [Recovered/Resolved]
  - Hepatic function abnormal [Recovered/Resolved]
